FAERS Safety Report 16782009 (Version 4)
Quarter: 2019Q4

REPORT INFORMATION
  Report Type: Spontaneous
  Country: NO (occurrence: NO)
  Receive Date: 20190906
  Receipt Date: 20191216
  Transmission Date: 20200122
  Serious: Yes (Death, Hospitalization, Other)
  Sender: FDA-Public Use
  Company Number: NO-PFIZER INC-2019386926

PATIENT

DRUGS (11)
  1. BACTRIM [Suspect]
     Active Substance: SULFAMETHOXAZOLE\TRIMETHOPRIM
     Dosage: UNK
     Route: 065
  2. NEVIRAPINE. [Suspect]
     Active Substance: NEVIRAPINE
     Dosage: UNK
     Route: 065
  3. CORDARONE [Suspect]
     Active Substance: AMIODARONE HYDROCHLORIDE
     Dosage: UNK
  4. SELOZOK [Suspect]
     Active Substance: METOPROLOL SUCCINATE
     Dosage: UNK
     Route: 048
  5. ETALPHA [Suspect]
     Active Substance: ALFACALCIDOL
     Dosage: UNK
     Route: 065
  6. ARANESP [Suspect]
     Active Substance: DARBEPOETIN ALFA
     Dosage: UNK
     Route: 065
  7. AMLODIPINE BESILATE [Suspect]
     Active Substance: AMLODIPINE BESYLATE
     Dosage: UNK
     Route: 065
  8. TRIATEC [RAMIPRIL] [Suspect]
     Active Substance: RAMIPRIL
     Dosage: UNK
     Route: 048
  9. EPIVIR [Suspect]
     Active Substance: LAMIVUDINE
     Dosage: UNK
     Route: 065
     Dates: start: 201012
  10. ZIAGEN [Suspect]
     Active Substance: ABACAVIR SULFATE
     Dosage: 600 MG, QD
     Route: 065
     Dates: start: 201012
  11. NATRON [SODIUM BICARBONATE] [Suspect]
     Active Substance: SODIUM BICARBONATE
     Dosage: UNK
     Route: 065

REACTIONS (16)
  - Pyrexia [Unknown]
  - HIV infection [Unknown]
  - Tuberculosis [Unknown]
  - Musculoskeletal pain [Unknown]
  - Hypertension [Unknown]
  - Synovitis [Unknown]
  - Renal failure [Unknown]
  - Hepatitis B [Unknown]
  - Gastrointestinal haemorrhage [Fatal]
  - Genital rash [Unknown]
  - Abscess [Unknown]
  - Ulcer [Unknown]
  - Kaposi^s sarcoma [Unknown]
  - Fluid retention [Unknown]
  - Cardiac failure [Unknown]
  - Abdominal pain [Unknown]

NARRATIVE: CASE EVENT DATE: 2015
